FAERS Safety Report 23132125 (Version 1)
Quarter: 2023Q4

REPORT INFORMATION
  Report Type: Spontaneous
  Country: US (occurrence: US)
  Receive Date: 20231101
  Receipt Date: 20231101
  Transmission Date: 20240110
  Serious: No
  Sender: FDA-Public Use
  Company Number: US-ELI_LILLY_AND_COMPANY-US202310015453

PATIENT
  Age: 73 Year
  Sex: Female

DRUGS (1)
  1. TRULICITY [Suspect]
     Active Substance: DULAGLUTIDE
     Indication: Product used for unknown indication
     Dosage: 0.75 MG, UNKNOWN
     Route: 065

REACTIONS (8)
  - Injury associated with device [Unknown]
  - Product administered at inappropriate site [Unknown]
  - Injection site pain [Recovering/Resolving]
  - Injection site bruising [Recovered/Resolved]
  - Arthralgia [Recovering/Resolving]
  - Injection site haemorrhage [Recovered/Resolved]
  - Musculoskeletal stiffness [Unknown]
  - Pain [Unknown]

NARRATIVE: CASE EVENT DATE: 20231021
